FAERS Safety Report 5394170-9 (Version None)
Quarter: 2007Q3

REPORT INFORMATION
  Report Type: 
  Country: None (occurrence: None)
  Receive Date: 20070723
  Receipt Date: 20070320
  Transmission Date: 20080115
  Serious: No
  Sender: FDA-Public Use
  Company Number: A0643900A

PATIENT
  Age: 78 Year
  Sex: Female

DRUGS (10)
  1. AVANDIA [Suspect]
     Dosage: 4MG TWICE PER DAY
     Route: 048
     Dates: start: 20070201
  2. NIFEDIPINE [Concomitant]
  3. GEMFIBROZIL [Concomitant]
  4. GLYBURIDE [Concomitant]
  5. PRAVASTATIN [Concomitant]
  6. DIOVAN [Concomitant]
  7. ANAGRELIDE HCL [Concomitant]
  8. LUMIGAN [Concomitant]
  9. BRIMONIDINE TARTRATE [Concomitant]
  10. LEVOBUNOLOL HCL [Concomitant]

REACTIONS (2)
  - HAEMOGLOBIN DECREASED [None]
  - JOINT SWELLING [None]
